FAERS Safety Report 13726221 (Version 1)
Quarter: 2017Q3

REPORT INFORMATION
  Report Type: Spontaneous
  Country: CN (occurrence: CN)
  Receive Date: 20170706
  Receipt Date: 20170706
  Transmission Date: 20171127
  Serious: No
  Sender: FDA-Public Use
  Company Number: CN-ELI_LILLY_AND_COMPANY-CN201706011570

PATIENT
  Age: 43 Year
  Sex: Male

DRUGS (1)
  1. CIALIS [Suspect]
     Active Substance: TADALAFIL
     Indication: ERECTILE DYSFUNCTION
     Dosage: 5 MG, DAILY
     Route: 048
     Dates: start: 2016

REACTIONS (5)
  - Arthralgia [Unknown]
  - Back pain [Unknown]
  - Eye discharge [Unknown]
  - Ocular hyperaemia [Unknown]
  - Musculoskeletal pain [Unknown]
